FAERS Safety Report 9297796 (Version 1)
Quarter: 2013Q2

REPORT INFORMATION
  Report Type: Report from Study
  Country: AR (occurrence: AR)
  Receive Date: 20130520
  Receipt Date: 20130520
  Transmission Date: 20140414
  Serious: Yes (Hospitalization, Other)
  Sender: FDA-Public Use
  Company Number: PHHY2013AR049842

PATIENT
  Sex: Female

DRUGS (2)
  1. EXFORGE [Suspect]
     Indication: BLOOD PRESSURE ABNORMAL
     Dosage: 1 DF (160 MG VALS, 10 MG AMLO), DAILY
     Route: 048
  2. EXFORGE [Suspect]
     Dosage: 1 DF (160 MG VALS, 10 MG AMLO), DAILY
     Route: 048

REACTIONS (6)
  - Synovial cyst [Recovering/Resolving]
  - Vein disorder [Recovering/Resolving]
  - Skin disorder [Recovering/Resolving]
  - Gait disturbance [Unknown]
  - Pain [Unknown]
  - Vein discolouration [Unknown]
